FAERS Safety Report 4719214-6 (Version None)
Quarter: 2005Q3

REPORT INFORMATION
  Report Type: 
  Country: None (occurrence: None)
  Receive Date: 20050720
  Receipt Date: 20050708
  Transmission Date: 20060218
  Serious: Yes (Other)
  Sender: FDA-Public Use
  Company Number: NO-2005-013406

PATIENT
  Age: 42 Year
  Sex: Female

DRUGS (1)
  1. LEVONORGESTREL [Suspect]
     Indication: CONTRACEPTION
     Dosage: 20 UG/DAY CONT INTRAUTERINE
     Route: 015
     Dates: start: 20020101, end: 20050301

REACTIONS (4)
  - GENITAL BURNING SENSATION [None]
  - GENITAL PRURITUS FEMALE [None]
  - NEURODERMATITIS [None]
  - VULVAL DISORDER [None]
